FAERS Safety Report 6256537-6 (Version None)
Quarter: 2009Q3

REPORT INFORMATION
  Report Type: 
  Country: None (occurrence: None)
  Receive Date: 20090706
  Receipt Date: 20090626
  Transmission Date: 20100115
  Serious: No
  Sender: FDA-Public Use
  Company Number: CA-JNJFOC-20090700993

PATIENT
  Age: 73 Year
  Sex: Male

DRUGS (3)
  1. FENTANYL [Suspect]
     Indication: CENTRAL PAIN SYNDROME
     Route: 062
  2. GABAPENTIN [Concomitant]
     Indication: PSYCHOTIC DISORDER
  3. QUETIAPINE FUMARATE [Concomitant]
     Indication: PSYCHOTIC DISORDER

REACTIONS (2)
  - SOMNOLENCE [None]
  - WRONG TECHNIQUE IN DRUG USAGE PROCESS [None]
